FAERS Safety Report 10753583 (Version 1)
Quarter: 2015Q1

REPORT INFORMATION
  Report Type: Spontaneous
  Country: US (occurrence: None)
  Receive Date: 20150129
  Receipt Date: 20150129
  Transmission Date: 20150721
  Serious: Yes (Other)
  Sender: FDA-Public Use
  Company Number: None

PATIENT
  Age: 18 Year
  Sex: Female
  Weight: 55.79 kg

DRUGS (1)
  1. LEXAPRO [Suspect]
     Active Substance: ESCITALOPRAM OXALATE
     Indication: DEPRESSION
     Dosage: 1 PILL DAILY
     Route: 048
     Dates: start: 20141221, end: 20150121

REACTIONS (1)
  - Dyskinesia [None]

NARRATIVE: CASE EVENT DATE: 20150121
